FAERS Safety Report 25414679 (Version 1)
Quarter: 2025Q2

REPORT INFORMATION
  Report Type: Spontaneous
  Country: JP (occurrence: JP)
  Receive Date: 20250609
  Receipt Date: 20250609
  Transmission Date: 20250717
  Serious: Yes (Other)
  Sender: TAKEDA
  Company Number: JP-MMM-Otsuka-FCL4VOYX

PATIENT
  Age: 52 Year
  Sex: Female

DRUGS (4)
  1. TRINTELLIX [Suspect]
     Active Substance: VORTIOXETINE HYDROBROMIDE
     Indication: Product used for unknown indication
     Dosage: 5 MILLIGRAM, QD
     Dates: end: 20250523
  2. ROZEREM [Suspect]
     Active Substance: RAMELTEON
     Indication: Product used for unknown indication
  3. REXULTI [Suspect]
     Active Substance: BREXPIPRAZOLE
     Indication: Depression
     Dosage: 1 MILLIGRAM, QD
     Dates: start: 20250509, end: 20250523
  4. DAYVIGO [Suspect]
     Active Substance: LEMBOREXANT
     Indication: Product used for unknown indication

REACTIONS (3)
  - Hepatic function abnormal [Unknown]
  - Food poisoning [Unknown]
  - Diarrhoea [Unknown]

NARRATIVE: CASE EVENT DATE: 20250523
